FAERS Safety Report 22225223 (Version 1)
Quarter: 2023Q2

REPORT INFORMATION
  Report Type: Spontaneous
  Country: FR (occurrence: FR)
  Receive Date: 20230418
  Receipt Date: 20230418
  Transmission Date: 20230721
  Serious: Yes (Other)
  Sender: FDA-Public Use
  Company Number: FR-AMERICAN REGENT INC-2023000917

PATIENT
  Age: 68 Year
  Sex: Male
  Weight: 68 kg

DRUGS (1)
  1. VENOFER [Suspect]
     Active Substance: IRON SUCROSE
     Indication: Product used for unknown indication
     Dosage: ^1H30^, 300 MILLIGRAM (20 MG/ML)
     Route: 042
     Dates: start: 20230320, end: 20230320

REACTIONS (1)
  - Vein disorder [Recovering/Resolving]

NARRATIVE: CASE EVENT DATE: 20230320
